FAERS Safety Report 24071112 (Version 3)
Quarter: 2024Q3

REPORT INFORMATION
  Report Type: Report from Study
  Country: US (occurrence: US)
  Receive Date: 20240710
  Receipt Date: 20240710
  Transmission Date: 20241017
  Serious: No
  Sender: ROCHE
  Company Number: US-ROCHE-3516441

PATIENT
  Age: 15 Year
  Sex: Female
  Weight: 41.5 kg

DRUGS (1)
  1. EVRYSDI [Suspect]
     Active Substance: RISDIPLAM
     Indication: Spinal muscular atrophy
     Dosage: 5 MG (6.6 ML)
     Route: 048
     Dates: start: 20220506, end: 20240219

REACTIONS (1)
  - Weight decreased [Unknown]
